FAERS Safety Report 13361606 (Version 5)
Quarter: 2017Q3

REPORT INFORMATION
  Report Type: Report from Study
  Country: JP (occurrence: JP)
  Receive Date: 20170323
  Receipt Date: 20170714
  Transmission Date: 20171127
  Serious: Yes (Hospitalization, Other)
  Sender: FDA-Public Use
  Company Number: JP-BRISTOL-MYERS SQUIBB COMPANY-BMS-2017-013877

PATIENT
  Age: 86 Year
  Sex: Male

DRUGS (1)
  1. NIVOLUMAB [Suspect]
     Active Substance: NIVOLUMAB
     Indication: MALIGNANT MELANOMA
     Dosage: 3 MG/KG, UNK
     Route: 041
     Dates: start: 20161025

REACTIONS (3)
  - Pneumomediastinum [Recovered/Resolved]
  - Fulminant type 1 diabetes mellitus [Recovered/Resolved]
  - Gout [Recovering/Resolving]

NARRATIVE: CASE EVENT DATE: 20170104
